FAERS Safety Report 19894977 (Version 1)
Quarter: 2021Q3

REPORT INFORMATION
  Report Type: Report from Study
  Country: DE (occurrence: DE)
  Receive Date: 20210929
  Receipt Date: 20210929
  Transmission Date: 20211014
  Serious: Yes (Hospitalization)
  Sender: FDA-Public Use
  Company Number: DE-ELI_LILLY_AND_COMPANY-DE202109006712

PATIENT
  Age: 77 Year
  Sex: Female

DRUGS (2)
  1. FUROSEMIDE. [Concomitant]
     Active Substance: FUROSEMIDE
     Indication: PRODUCT USED FOR UNKNOWN INDICATION
  2. FORSTEO [Suspect]
     Active Substance: TERIPARATIDE
     Indication: OSTEOPOROSIS
     Dosage: UNK UNK, DAILY
     Route: 058
     Dates: start: 20200925

REACTIONS (4)
  - Electric shock [Recovered/Resolved]
  - Heart rate increased [Recovered/Resolved]
  - Blood potassium increased [Recovering/Resolving]
  - Renal function test abnormal [Unknown]

NARRATIVE: CASE EVENT DATE: 20210605
